FAERS Safety Report 10031668 (Version 1)
Quarter: 2014Q1

REPORT INFORMATION
  Report Type: Spontaneous
  Country: US (occurrence: US)
  Receive Date: 20140324
  Receipt Date: 20140324
  Transmission Date: 20141002
  Serious: No
  Sender: FDA-Public Use
  Company Number: US-PFIZER INC-2014083338

PATIENT
  Sex: Male

DRUGS (2)
  1. CHANTIX [Suspect]
     Dosage: UNK
  2. ATENOLOL [Concomitant]
     Indication: HEART RATE INCREASED
     Dosage: 50 MG, 2X/DAY

REACTIONS (1)
  - Abnormal dreams [Unknown]
